FAERS Safety Report 12250594 (Version 1)
Quarter: 2016Q2

REPORT INFORMATION
  Report Type: Spontaneous
  Country: JP (occurrence: JP)
  Receive Date: 20160408
  Receipt Date: 20160408
  Transmission Date: 20160815
  Serious: Yes (Hospitalization)
  Sender: FDA-Public Use
  Company Number: JP-ALLERGAN-1650723US

PATIENT
  Age: 84 Year
  Sex: Male

DRUGS (16)
  1. AMLODIPINE [Concomitant]
     Active Substance: AMLODIPINE BESYLATE
     Indication: HYPERTENSION
     Dosage: 5 MG, QD
     Route: 048
  2. PITAVASTATIN CALCIUM [Concomitant]
     Active Substance: PITAVASTATIN CALCIUM
     Indication: DYSLIPIDAEMIA
     Dosage: 2 MG, QD
     Route: 048
  3. BICALUTAMIDE. [Concomitant]
     Active Substance: BICALUTAMIDE
     Indication: PROSTATE CANCER
     Dosage: 80 MG, QD
     Route: 048
  4. GLUBES [Suspect]
     Active Substance: MITIGLINIDE CALCIUM HYDRATE\VOGLIBOSE
     Indication: TYPE 2 DIABETES MELLITUS
     Dosage: 3 DF, TID
     Route: 048
     Dates: start: 20160219, end: 20160222
  5. FEBURIC [Concomitant]
     Active Substance: FEBUXOSTAT
     Indication: HYPERURICAEMIA
     Dosage: 20 MG, QD
     Route: 048
  6. CALTAN [Concomitant]
     Active Substance: CALCIUM CARBONATE
     Indication: DIABETIC NEPHROPATHY
     Dosage: 1500 MG, QD
     Route: 048
  7. KALIAID [Concomitant]
     Indication: DIABETIC NEPHROPATHY
     Dosage: 5 DF, QD
     Route: 048
  8. FUROSEMIDE. [Concomitant]
     Active Substance: FUROSEMIDE
     Indication: CARDIAC FAILURE CHRONIC
     Dosage: 10 MG, UNK
     Route: 048
  9. SARPOGRELATE HYDROCHLORIDE [Concomitant]
     Active Substance: SARPOGRELATE
     Indication: PERIPHERAL ARTERIAL OCCLUSIVE DISEASE
     Dosage: 300 MG, QD
     Route: 048
  10. PLAVIX [Concomitant]
     Active Substance: CLOPIDOGREL BISULFATE
     Indication: PERIPHERAL ARTERIAL OCCLUSIVE DISEASE
     Dosage: 75 MG, QD
     Route: 048
  11. SODIUM BICARBONATE. [Concomitant]
     Active Substance: SODIUM BICARBONATE
     Indication: DIABETIC NEPHROPATHY
     Dosage: 1.5 G, QD
     Route: 048
  12. SENNOSIDE [Concomitant]
     Active Substance: SENNOSIDES
     Indication: CONSTIPATION
     Dosage: 36 MG, PRN, PER DAY
     Route: 048
  13. METHYCOBAL [Concomitant]
     Active Substance: METHYLCOBALAMIN
     Dosage: 1500 MG, QD
     Route: 048
  14. VITAMEDIN [Concomitant]
     Active Substance: CYANOCOBALAMIN\PYRIDOXINE HYDROCHLORIDE\THIAMINE
     Indication: VITAMIN SUPPLEMENTATION
     Dosage: 3 DF, QD
     Route: 048
  15. URIEF [Suspect]
     Active Substance: SILODOSIN
     Indication: DYSURIA
     Dosage: 2 MG, BID
     Route: 048
  16. URIEF [Suspect]
     Active Substance: SILODOSIN
     Indication: BLADDER OUTLET OBSTRUCTION

REACTIONS (2)
  - Hypoglycaemia [Recovered/Resolved]
  - Inappropriate schedule of drug administration [Unknown]

NARRATIVE: CASE EVENT DATE: 20160222
